FAERS Safety Report 9244369 (Version 1)
Quarter: 2013Q2

REPORT INFORMATION
  Report Type: Spontaneous
  Country: US (occurrence: US)
  Receive Date: 20130419
  Receipt Date: 20130419
  Transmission Date: 20140414
  Serious: Yes (Hospitalization, Other)
  Sender: FDA-Public Use
  Company Number: US-RB-052340-13

PATIENT
  Age: 41 Year
  Sex: Female

DRUGS (2)
  1. SUBOXONE FILM [Suspect]
     Indication: DRUG DEPENDENCE
     Dosage: SUBOXONE FILM
     Route: 060
     Dates: start: 2010, end: 20111029
  2. XANAX [Suspect]
     Indication: ANXIETY
     Dosage: 3-4 TIMES DAILY
     Route: 048
     Dates: end: 201110

REACTIONS (8)
  - Pain [Not Recovered/Not Resolved]
  - Convulsion [Recovered/Resolved]
  - Fall [Recovered/Resolved]
  - Accident [Recovered/Resolved]
  - Hip fracture [Recovered/Resolved]
  - Rib fracture [Recovered/Resolved]
  - Tooth fracture [Recovered/Resolved]
  - Laceration [Recovered/Resolved]
